FAERS Safety Report 18625350 (Version 1)
Quarter: 2020Q4

REPORT INFORMATION
  Report Type: Spontaneous
  Country: NG (occurrence: NG)
  Receive Date: 20201217
  Receipt Date: 20201217
  Transmission Date: 20210114
  Serious: Yes (Other)
  Sender: FDA-Public Use
  Company Number: NG-LUPIN PHARMACEUTICALS INC.-2020-10261

PATIENT
  Age: 84 Year
  Sex: Male

DRUGS (13)
  1. CEFTAZIDIME. [Suspect]
     Active Substance: CEFTAZIDIME
     Indication: ENDOPHTHALMITIS
     Dosage: 2 MILLIGRAM (CEFTAZIDIME 2MG INJECTION IN 0.1 ML)
  2. AMIKACIN. [Suspect]
     Active Substance: AMIKACIN
     Indication: ENDOPHTHALMITIS
     Dosage: UNK
  3. AMPHOTERICIN B. [Suspect]
     Active Substance: AMPHOTERICIN B
     Indication: MYCOTIC ENDOPHTHALMITIS
     Dosage: UNK
  4. ATROPINE. [Concomitant]
     Active Substance: ATROPINE
     Indication: DRUG THERAPY
     Dosage: UNK
     Route: 061
  5. DEXAMETHASONE. [Concomitant]
     Active Substance: DEXAMETHASONE
     Indication: DRUG THERAPY
     Dosage: UNK
     Route: 061
  6. FLUCONAZOLE. [Concomitant]
     Active Substance: FLUCONAZOLE
     Indication: MYCOTIC ENDOPHTHALMITIS
     Dosage: 200 MILLIGRAM, QOD
     Route: 048
  7. LINEZOLID. [Suspect]
     Active Substance: LINEZOLID
     Indication: ENDOPHTHALMITIS
     Dosage: 600 MILLIGRAM, TABLET
     Route: 065
  8. LINEZOLID. [Suspect]
     Active Substance: LINEZOLID
     Dosage: 600 MILLIGRAM
     Route: 048
  9. METHYLPREDNISOLONE. [Suspect]
     Active Substance: METHYLPREDNISOLONE
     Indication: ENDOPHTHALMITIS
     Dosage: 0.5 MILLILITER (CONTAINING 20 MG OF METHYLPREDNISOLONE ACETATE)
     Route: 057
  10. LINEZOLID. [Suspect]
     Active Substance: LINEZOLID
     Indication: ENTEROCOCCAL INFECTION
     Dosage: 200 MILLIGRAM
  11. AVASTIN [Concomitant]
     Active Substance: BEVACIZUMAB
     Indication: ANTERIOR CHAMBER ANGLE NEOVASCULARISATION
     Dosage: UNK
  12. MOXIFLOXACIN. [Concomitant]
     Active Substance: MOXIFLOXACIN
     Indication: DRUG THERAPY
     Dosage: UNK
     Route: 061
  13. VANCOMYCIN [Suspect]
     Active Substance: VANCOMYCIN
     Indication: ENDOPHTHALMITIS
     Dosage: 1 MILLIGRAM (1MG INJECTION IN 0.1 ML)

REACTIONS (2)
  - Drug ineffective [Unknown]
  - Macular detachment [Not Recovered/Not Resolved]
